FAERS Safety Report 8134168-0 (Version None)
Quarter: 2012Q1

REPORT INFORMATION
  Report Type: 
  Country: None (occurrence: None)
  Receive Date: 20120213
  Receipt Date: 20120213
  Transmission Date: 20120608
  Serious: Yes (Other)
  Sender: FDA-Public Use
  Company Number: None

PATIENT
  Age: 80 Year
  Sex: Female
  Weight: 46.7205 kg

DRUGS (4)
  1. FLUTICASONE PROPIONATE [Suspect]
     Indication: COUGH
     Dosage: 50MCG PER NOSTRIL ONCE A DAY SPRAY; 50MCG PER NOSTRIL ONCE A DAY SPRAY
     Dates: start: 20110201
  2. FLUTICASONE PROPIONATE [Suspect]
     Indication: UPPER-AIRWAY COUGH SYNDROME
     Dosage: 50MCG PER NOSTRIL ONCE A DAY SPRAY; 50MCG PER NOSTRIL ONCE A DAY SPRAY
     Dates: start: 20110201
  3. FLUTICASONE PROPIONATE [Suspect]
     Indication: COUGH
     Dosage: 50MCG PER NOSTRIL ONCE A DAY SPRAY; 50MCG PER NOSTRIL ONCE A DAY SPRAY
     Dates: start: 20110917
  4. FLUTICASONE PROPIONATE [Suspect]
     Indication: UPPER-AIRWAY COUGH SYNDROME
     Dosage: 50MCG PER NOSTRIL ONCE A DAY SPRAY; 50MCG PER NOSTRIL ONCE A DAY SPRAY
     Dates: start: 20110917

REACTIONS (6)
  - SCAB [None]
  - TENDERNESS [None]
  - NASAL DISORDER [None]
  - INFLAMMATION [None]
  - EPISTAXIS [None]
  - CHEILITIS [None]
